FAERS Safety Report 9818175 (Version 1)
Quarter: 2014Q1

REPORT INFORMATION
  Report Type: Spontaneous
  Country: CA (occurrence: CA)
  Receive Date: 20140115
  Receipt Date: 20140115
  Transmission Date: 20141002
  Serious: Yes (Hospitalization)
  Sender: FDA-Public Use
  Company Number: CA-ASTRAZENECA-2014SE01544

PATIENT
  Age: 66 Year
  Sex: Female
  Weight: 43.1 kg

DRUGS (4)
  1. VIMOVO [Suspect]
     Dosage: 500 MG, AS DIRECTED
     Route: 048
     Dates: start: 20140105
  2. ADVIL [Concomitant]
  3. DICLOFENAC [Concomitant]
  4. FOSAMAX [Concomitant]
     Dosage: 1 WEEKLY
     Route: 048

REACTIONS (5)
  - Incontinence [Recovered/Resolved]
  - Loss of consciousness [Recovered/Resolved]
  - Pruritus [Recovered/Resolved]
  - Vomiting [Recovered/Resolved]
  - Hypersensitivity [Recovered/Resolved]
